FAERS Safety Report 23652597 (Version 9)
Quarter: 2024Q3

REPORT INFORMATION
  Report Type: Report from Study
  Country: CO (occurrence: CO)
  Receive Date: 20240320
  Receipt Date: 20240909
  Transmission Date: 20241016
  Serious: Yes (Disabling, Other)
  Sender: NOVARTIS
  Company Number: CO-002147023-NVSC2024CO060179

PATIENT
  Age: 55 Year
  Sex: Male
  Weight: 125 kg

DRUGS (7)
  1. COSENTYX [Suspect]
     Active Substance: SECUKINUMAB
     Indication: Ankylosing spondylitis
     Dosage: 300 MG, QMO
     Route: 058
     Dates: start: 20190530
  2. COSENTYX [Suspect]
     Active Substance: SECUKINUMAB
     Dosage: 150 MG, QMO
     Route: 058
  3. COSENTYX [Suspect]
     Active Substance: SECUKINUMAB
     Dosage: 150 MG, QMO (2 OF 150 MG) (4 YEARS AGO (THE PATIENT DOES NOT REMEMBER THE EXACT DATE))
     Route: 065
     Dates: end: 202310
  4. COSENTYX [Suspect]
     Active Substance: SECUKINUMAB
     Dosage: UNK (STOP: 2 MONTHS AGO)
     Route: 065
     Dates: start: 202402
  5. COSENTYX [Suspect]
     Active Substance: SECUKINUMAB
     Dosage: UNK
     Route: 058
     Dates: start: 20240313
  6. COSENTYX [Suspect]
     Active Substance: SECUKINUMAB
     Dosage: 300 MG, QMO (START: 2 MONTHS AGO)
     Route: 065
  7. COSENTYX [Suspect]
     Active Substance: SECUKINUMAB
     Dosage: 300 MG, QMO
     Route: 065

REACTIONS (18)
  - Gait disturbance [Recovered/Resolved]
  - Neck pain [Recovered/Resolved]
  - Back pain [Recovered/Resolved]
  - Inflammation [Recovered/Resolved]
  - Initial insomnia [Recovered/Resolved]
  - Arthritis [Recovered/Resolved]
  - Arthritis [Unknown]
  - Ankylosing spondylitis [Recovered/Resolved]
  - Malaise [Unknown]
  - Movement disorder [Unknown]
  - Pain in extremity [Unknown]
  - Spinal pain [Unknown]
  - Arthralgia [Not Recovered/Not Resolved]
  - Product supply issue [Unknown]
  - Aphasia [Unknown]
  - Pain [Unknown]
  - Drug ineffective [Unknown]
  - Ill-defined disorder [Unknown]

NARRATIVE: CASE EVENT DATE: 20231201
